FAERS Safety Report 12506632 (Version 1)
Quarter: 2016Q2

REPORT INFORMATION
  Report Type: Spontaneous
  Country: US (occurrence: US)
  Receive Date: 20160628
  Receipt Date: 20160628
  Transmission Date: 20160815
  Serious: No
  Sender: FDA-Public Use
  Company Number: US-TAKEDA-2016TUS010499

PATIENT
  Age: 69 Year
  Sex: Male

DRUGS (2)
  1. REMICADE [Concomitant]
     Active Substance: INFLIXIMAB
  2. ENTYVIO [Suspect]
     Active Substance: VEDOLIZUMAB
     Indication: COLITIS ULCERATIVE
     Dosage: UNK
     Route: 042
     Dates: end: 20160614

REACTIONS (4)
  - Pruritus [Unknown]
  - Rash [Unknown]
  - Paraesthesia [Unknown]
  - Lip swelling [Unknown]

NARRATIVE: CASE EVENT DATE: 20160614
